FAERS Safety Report 9871098 (Version 1)
Quarter: 2014Q1

REPORT INFORMATION
  Report Type: Spontaneous
  Country: US (occurrence: US)
  Receive Date: 20140205
  Receipt Date: 20140205
  Transmission Date: 20141002
  Serious: No
  Sender: FDA-Public Use
  Company Number: US-GILEAD-2013-0073883

PATIENT
  Age: 41 Year
  Sex: Female

DRUGS (26)
  1. STRIBILD [Suspect]
     Indication: HIV INFECTION
     Dosage: UNK
     Dates: start: 20130313
  2. ATRIPLA [Concomitant]
     Indication: HIV INFECTION
     Dosage: UNK
     Dates: start: 20130227
  3. RALTEGRAVIR [Concomitant]
     Indication: HIV INFECTION
  4. PHENERGAN                          /00033001/ [Concomitant]
  5. CODEINE [Concomitant]
  6. PAROXETINE [Concomitant]
  7. OMEPRAZOLE [Concomitant]
  8. BECLOMETHASONE                     /00212602/ [Concomitant]
  9. BACLOFEN [Concomitant]
  10. ESTROGEN NOS [Concomitant]
  11. ATORVASTATIN [Concomitant]
  12. IBUPROFEN [Concomitant]
  13. NAPROXEN [Concomitant]
  14. ALBUTEROL                          /00139501/ [Concomitant]
  15. ALLOPURINOL [Concomitant]
  16. ASPIRIN [Concomitant]
  17. ONDANSETRON [Concomitant]
  18. METOPROLOL [Concomitant]
  19. CETRIZINE [Concomitant]
  20. LISINOPRIL [Concomitant]
  21. CLOTRIMAZOLE [Concomitant]
  22. LORATADINE [Concomitant]
  23. METFORMIN [Concomitant]
  24. RAMIPRIL [Concomitant]
  25. LORAZEPAM [Concomitant]
  26. AZITHROMYCIN [Concomitant]

REACTIONS (3)
  - Upper respiratory tract infection [Not Recovered/Not Resolved]
  - Migraine [Recovered/Resolved]
  - Diarrhoea [Recovered/Resolved]
